FAERS Safety Report 8202582-0 (Version None)
Quarter: 2012Q1

REPORT INFORMATION
  Report Type: 
  Country: None (occurrence: None)
  Receive Date: 20120312
  Receipt Date: 20120305
  Transmission Date: 20120608
  Serious: Yes (Other)
  Sender: FDA-Public Use
  Company Number: US-ABBOTT-12P-163-0912315-00

PATIENT
  Sex: Female
  Weight: 81.72 kg

DRUGS (7)
  1. METHOTREXATE [Concomitant]
     Dates: start: 20120305
  2. VICODIN [Concomitant]
     Indication: PAIN
  3. SIMVASTATIN [Concomitant]
     Indication: BLOOD CHOLESTEROL INCREASED
  4. SYNTHROID [Concomitant]
     Indication: HYPOTHYROIDISM
  5. METHOTREXATE [Concomitant]
     Indication: RHEUMATOID ARTHRITIS
  6. HUMIRA [Suspect]
     Indication: RHEUMATOID ARTHRITIS
     Dates: start: 20081101, end: 20111101
  7. HUMIRA [Suspect]
     Dates: start: 20120301

REACTIONS (7)
  - FATIGUE [None]
  - RHEUMATOID ARTHRITIS [None]
  - GRAND MAL CONVULSION [None]
  - MIGRAINE [None]
  - MUSCULOSKELETAL STIFFNESS [None]
  - INFLUENZA [None]
  - STRESS [None]
